FAERS Safety Report 5934939-2 (Version None)
Quarter: 2008Q4

REPORT INFORMATION
  Report Type: 
  Country: None (occurrence: None)
  Receive Date: 20081027
  Receipt Date: 20081015
  Transmission Date: 20090506
  Serious: Yes (Hospitalization)
  Sender: FDA-Public Use
  Company Number: GXKR2008GB09845

PATIENT
  Age: 34 Year
  Sex: Male

DRUGS (11)
  1. OMEPRAZOLE [Suspect]
     Indication: GASTROOESOPHAGEAL REFLUX DISEASE
  2. MINOMYCINE (NGX) (MINOMYCINE) UNKNOWN [Suspect]
     Indication: MYCOBACTERIUM ABSCESSUS INFECTION
  3. MINOMYCINE (NGX) (MINOMYCINE) UNKNOWN [Suspect]
     Indication: PSEUDOMONAS INFECTION
  4. CLARITHROMYCIN [Suspect]
     Indication: MYCOBACTERIUM ABSCESSUS INFECTION
  5. CLARITHROMYCIN [Suspect]
     Indication: PSEUDOMONAS INFECTION
  6. TOBRAMYCIN [Suspect]
     Indication: MYCOBACTERIUM ABSCESSUS INFECTION
  7. TOBRAMYCIN [Suspect]
     Indication: PSEUDOMONAS INFECTION
  8. INTERFERON GAMMA (INTERFERON GAMMA, INTERFERON GAMMA 1A) [Suspect]
     Indication: MYCOBACTERIUM ABSCESSUS INFECTION
     Dosage: SUBCUTANEOUS
     Route: 058
  9. INTERFERON GAMMA (INTERFERON GAMMA, INTERFERON GAMMA 1A) [Suspect]
     Indication: PSEUDOMONAS INFECTION
     Dosage: SUBCUTANEOUS
     Route: 058
  10. MEROPENEM (MEROPENEM) [Suspect]
     Dosage: INTRAVENOUS
     Route: 042
  11. COLOMYCIN (COLISTIN) [Suspect]
     Dosage: INTRAVENOUS
     Route: 042

REACTIONS (7)
  - ABDOMINAL PAIN [None]
  - DEHYDRATION [None]
  - HYPOTENSION [None]
  - NAUSEA [None]
  - PSEUDOMEMBRANOUS COLITIS [None]
  - PYREXIA [None]
  - TACHYCARDIA [None]
